FAERS Safety Report 5912051-6 (Version None)
Quarter: 2008Q4

REPORT INFORMATION
  Report Type: 
  Country: None (occurrence: None)
  Receive Date: 20081007
  Receipt Date: 20081007
  Transmission Date: 20090506
  Serious: Yes (Other)
  Sender: FDA-Public Use
  Company Number: None

PATIENT
  Age: 44 Year
  Sex: Male
  Weight: 66.6788 kg

DRUGS (1)
  1. TUBERSOL [Suspect]
     Indication: TUBERCULIN TEST
     Dosage: 0.1 ML INTRADERMA
     Route: 023
     Dates: start: 20080929

REACTIONS (6)
  - AGITATION [None]
  - HEADACHE [None]
  - HYPERHIDROSIS [None]
  - MIDDLE INSOMNIA [None]
  - NAUSEA [None]
  - VOMITING [None]
